FAERS Safety Report 14643186 (Version 1)
Quarter: 2018Q1

REPORT INFORMATION
  Report Type: Spontaneous
  Country: US (occurrence: US)
  Receive Date: 20180315
  Receipt Date: 20180315
  Transmission Date: 20180509
  Serious: Yes (Other)
  Sender: FDA-Public Use
  Company Number: US-BAYER-2018-047817

PATIENT
  Sex: Female

DRUGS (2)
  1. NEXAVAR [Suspect]
     Active Substance: SORAFENIB
     Dosage: 200 MG DAILY
  2. NEXAVAR [Suspect]
     Active Substance: SORAFENIB
     Dosage: 400 MG DAILY

REACTIONS (5)
  - Rash generalised [Not Recovered/Not Resolved]
  - Off label use [None]
  - Rash vesicular [Not Recovered/Not Resolved]
  - Rash erythematous [Not Recovered/Not Resolved]
  - Rash [Not Recovered/Not Resolved]
